FAERS Safety Report 5763491-X (Version None)
Quarter: 2008Q2

REPORT INFORMATION
  Report Type: 
  Country: None (occurrence: None)
  Receive Date: 20080529
  Receipt Date: 20080201
  Transmission Date: 20081010
  Serious: Yes (Other)
  Sender: FDA-Public Use
  Company Number: FLCT20080011

PATIENT
  Age: 53 Year
  Sex: Male
  Weight: 83.9154 kg

DRUGS (5)
  1. FLECTOR [Suspect]
     Indication: BACK PAIN
     Dosage: 1 PATCH ONCE X 12 HRS., TOPICAL
     Route: 061
     Dates: start: 20080125, end: 20080125
  2. DICLOFENAC SODIUM [Suspect]
     Indication: BACK PAIN
     Dosage: 50 MG, 1 TID, PER ORAL
     Route: 048
     Dates: start: 20060101
  3. ULTRAM [Suspect]
     Indication: BACK PAIN
     Dosage: 200 MG, 1 TAB IN AM, PER ORAL
     Route: 048
     Dates: start: 20050101
  4. ULTRAM [Suspect]
     Indication: BACK PAIN
     Dosage: 50 MG, 1 TAB IN PM, PER ORAL
     Route: 048
     Dates: start: 20070101
  5. CADUET [Concomitant]

REACTIONS (2)
  - ABDOMINAL PAIN [None]
  - GASTROINTESTINAL HAEMORRHAGE [None]
